FAERS Safety Report 13063236 (Version 2)
Quarter: 2016Q4

REPORT INFORMATION
  Report Type: Spontaneous
  Country: FR (occurrence: FR)
  Receive Date: 20161227
  Receipt Date: 20161230
  Transmission Date: 20170207
  Serious: Yes (Death)
  Sender: FDA-Public Use
  Company Number: FR-ROCHE-1872000

PATIENT
  Age: 43 Year
  Sex: Male
  Weight: 36 kg

DRUGS (10)
  1. LOVENOX [Suspect]
     Active Substance: ENOXAPARIN SODIUM
     Indication: THROMBOSIS
     Dosage: 4000 IU ANTI-XA/0.4 ML
     Route: 058
  2. TOPALGIC (FRANCE) [Suspect]
     Active Substance: TRAMADOL
     Indication: PAIN
     Dosage: 100MG/2ML
     Route: 042
     Dates: start: 20161112, end: 20161120
  3. HYPNOVEL (UNSPEC) [Suspect]
     Active Substance: MIDAZOLAM\MIDAZOLAM HYDROCHLORIDE
     Indication: AGITATION
     Route: 040
     Dates: start: 20161112, end: 20161112
  4. FLAGYL [Suspect]
     Active Substance: METRONIDAZOLE\METRONIDAZOLE HYDROCHLORIDE
     Indication: INFECTION
     Route: 042
     Dates: start: 20161112, end: 20161113
  5. GENTAMYCIN [Concomitant]
     Active Substance: GENTAMICIN
     Route: 042
  6. PIPERACILLIN/TAZOBACTAM [Concomitant]
     Active Substance: PIPERACILLIN SODIUM\TAZOBACTAM SODIUM
  7. GELOFUSINE (FRANCE) [Concomitant]
  8. ROCEPHINE [Suspect]
     Active Substance: CEFTRIAXONE SODIUM
     Indication: INFECTION
     Route: 042
     Dates: start: 20161112, end: 20161113
  9. MANNITOL. [Concomitant]
     Active Substance: MANNITOL
  10. FLUMAZENIL. [Concomitant]
     Active Substance: FLUMAZENIL

REACTIONS (1)
  - Thrombocytopenia [Fatal]

NARRATIVE: CASE EVENT DATE: 20161114
